FAERS Safety Report 19642442 (Version 1)
Quarter: 2021Q3

REPORT INFORMATION
  Report Type: Spontaneous
  Country: US (occurrence: US)
  Receive Date: 20210730
  Receipt Date: 20210730
  Transmission Date: 20211014
  Serious: No
  Sender: FDA-Public Use
  Company Number: US-PERRIGO-21US005327

PATIENT
  Sex: Female
  Weight: 58.5 kg

DRUGS (1)
  1. AMMONIUM LACTATE. [Suspect]
     Active Substance: AMMONIUM LACTATE
     Indication: DRY SKIN
     Dosage: SMALL AMOUNT, TID
     Route: 061
     Dates: start: 20210420, end: 20210420

REACTIONS (4)
  - Pruritus [Recovering/Resolving]
  - Electric shock sensation [Recovered/Resolved]
  - Rash [Not Recovered/Not Resolved]
  - Hypersensitivity [Not Recovered/Not Resolved]

NARRATIVE: CASE EVENT DATE: 20210420
